FAERS Safety Report 5287963-X (Version None)
Quarter: 2007Q2

REPORT INFORMATION
  Report Type: 
  Country: None (occurrence: None)
  Receive Date: 20070405
  Receipt Date: 20070329
  Transmission Date: 20071010
  Serious: Yes (Other)
  Sender: FDA-Public Use
  Company Number: JP-JNJFOC-20070400690

PATIENT
  Age: 72 Year
  Sex: Female

DRUGS (2)
  1. LEUSTATIN [Suspect]
     Indication: T-CELL LYMPHOMA
     Route: 065
     Dates: start: 20070321, end: 20070326
  2. TOPOTECIN [Concomitant]
     Route: 065

REACTIONS (3)
  - CONFUSIONAL STATE [None]
  - PARAPARESIS [None]
  - PYREXIA [None]
